FAERS Safety Report 4763545-0 (Version None)
Quarter: 2005Q3

REPORT INFORMATION
  Report Type: 
  Country: None (occurrence: None)
  Receive Date: 20050901
  Receipt Date: 20050718
  Transmission Date: 20060218
  Serious: No
  Sender: FDA-Public Use
  Company Number: 200511432BWH

PATIENT
  Age: 73 Year
  Sex: Male

DRUGS (2)
  1. LEVITRA [Suspect]
     Dosage: 20 MG, TOTAL DAILY, ORAL; SEE IMAGE
     Route: 048
     Dates: start: 20050101
  2. LEVITRA [Suspect]
     Dosage: 20 MG, TOTAL DAILY, ORAL; SEE IMAGE
     Route: 048
     Dates: start: 20050717

REACTIONS (6)
  - ASTHENIA [None]
  - DIFFICULTY IN WALKING [None]
  - EAR PAIN [None]
  - GAIT DISTURBANCE [None]
  - PALPITATIONS [None]
  - SENSATION OF HEAVINESS [None]
